FAERS Safety Report 9740961 (Version 1)
Quarter: 2013Q4

REPORT INFORMATION
  Report Type: Spontaneous
  Country: US (occurrence: US)
  Receive Date: 20131209
  Receipt Date: 20131209
  Transmission Date: 20140711
  Serious: No
  Sender: FDA-Public Use
  Company Number: US-009507513-1312USA003664

PATIENT
  Age: 60 Year
  Sex: Female

DRUGS (2)
  1. ASMANEX TWISTHALER [Suspect]
     Indication: ASTHMA
     Dosage: 4 TIMES A DAY
     Route: 055
  2. ASMANEX TWISTHALER [Suspect]
     Indication: SARCOIDOSIS

REACTIONS (3)
  - Chest discomfort [Recovering/Resolving]
  - Incorrect dose administered [Unknown]
  - Device malfunction [Unknown]
